FAERS Safety Report 24225785 (Version 2)
Quarter: 2025Q1

REPORT INFORMATION
  Report Type: Other
  Country: CA (occurrence: CA)
  Receive Date: 20240820
  Receipt Date: 20250210
  Transmission Date: 20250408
  Serious: Yes (Other)
  Sender: APOTEX
  Company Number: CA-APOTEX-2024AP009385

PATIENT
  Age: 5 Year
  Sex: Female

DRUGS (5)
  1. ZOLEDRONIC ACID [Suspect]
     Active Substance: ZOLEDRONIC ACID
     Indication: Calcinosis
     Route: 042
  2. ZOLEDRONIC ACID [Suspect]
     Active Substance: ZOLEDRONIC ACID
     Dosage: 16 MILLIGRAM/KILOGRAM, QD
     Route: 042
  3. ZOLEDRONIC ACID [Suspect]
     Active Substance: ZOLEDRONIC ACID
     Dosage: 250 MILLIGRAM, QD
     Route: 065
  4. PROBENECID [Suspect]
     Active Substance: PROBENECID
     Indication: Neoplasm
     Dosage: 750 MILLIGRAM, QD
     Route: 065
  5. SEVELAMER [Suspect]
     Active Substance: SEVELAMER
     Indication: Calcinosis
     Route: 065

REACTIONS (5)
  - Calcinosis [Recovered/Resolved]
  - Disease progression [Recovered/Resolved]
  - Product use in unapproved indication [Recovered/Resolved]
  - Neoplasm progression [Recovered/Resolved]
  - Drug ineffective for unapproved indication [Recovered/Resolved]
